FAERS Safety Report 9359946 (Version 1)
Quarter: 2013Q2

REPORT INFORMATION
  Report Type: Spontaneous
  Country: US (occurrence: None)
  Receive Date: 20130608
  Receipt Date: 20130608
  Transmission Date: 20140414
  Serious: No
  Sender: FDA-Public Use
  Company Number: 2013CT000027

PATIENT
  Sex: 0

DRUGS (4)
  1. KORLYM [Suspect]
     Indication: CUSHING^S SYNDROME
     Dates: start: 201302
  2. DYAZIDE [Concomitant]
  3. METFORMIN [Concomitant]
  4. KETOCONAZOLE [Concomitant]

REACTIONS (1)
  - Renin increased [None]
